FAERS Safety Report 8902879 (Version 1)
Quarter: 2012Q4

REPORT INFORMATION
  Report Type: 
  Country: US (occurrence: US)
  Receive Date: 20121112
  Receipt Date: 20121112
  Transmission Date: 20130627
  Serious: No
  Sender: FDA-Public Use
  Company Number: US-PFIZER INC-2012281776

PATIENT
  Sex: Female

DRUGS (2)
  1. LYRICA [Suspect]
     Dosage: 300 mg, 1x/day
     Route: 048
  2. LYRICA [Suspect]
     Dosage: 50 mg, 1x/day
     Route: 048

REACTIONS (5)
  - Withdrawal syndrome [Unknown]
  - Muscle spasms [Unknown]
  - Restlessness [Unknown]
  - Diarrhoea [Unknown]
  - Feeling abnormal [Unknown]
